FAERS Safety Report 10798302 (Version 1)
Quarter: 2015Q1

REPORT INFORMATION
  Report Type: Spontaneous
  Country: US (occurrence: US)
  Receive Date: 20150216
  Receipt Date: 20150216
  Transmission Date: 20150721
  Serious: No
  Sender: FDA-Public Use
  Company Number: US-PFIZER INC-2015060517

PATIENT

DRUGS (1)
  1. PRISTIQ EXTENDED RELEASE [Suspect]
     Active Substance: DESVENLAFAXINE SUCCINATE
     Dosage: 300 MG, DAILY (3 100 MG TABLETS DAILY IN THE AM)

REACTIONS (2)
  - Medication residue present [Unknown]
  - Drug effect incomplete [Unknown]
